FAERS Safety Report 23505157 (Version 1)
Quarter: 2024Q1

REPORT INFORMATION
  Report Type: Spontaneous
  Country: IT (occurrence: IT)
  Receive Date: 20240209
  Receipt Date: 20240209
  Transmission Date: 20240409
  Serious: Yes (Hospitalization, Other)
  Sender: FDA-Public Use
  Company Number: None

PATIENT

DRUGS (10)
  1. DACTINOMYCIN [Suspect]
     Active Substance: DACTINOMYCIN
     Indication: Ewing^s sarcoma
     Dosage: UNK
  2. VINCRISTINE [Suspect]
     Active Substance: VINCRISTINE
     Indication: Ewing^s sarcoma
     Dosage: UNK
  3. IFOSFAMIDE [Suspect]
     Active Substance: IFOSFAMIDE
     Indication: Ewing^s sarcoma
     Dosage: UNK
     Dates: start: 2012
  4. IFOSFAMIDE [Suspect]
     Active Substance: IFOSFAMIDE
     Dosage: UNK
     Dates: start: 2015
  5. IFOSFAMIDE [Suspect]
     Active Substance: IFOSFAMIDE
     Dosage: INCREASED TO 3 G/M2
     Dates: start: 2015
  6. IFOSFAMIDE [Suspect]
     Active Substance: IFOSFAMIDE
     Dosage: 3 MG/M2, UNK
  7. CYCLOPHOSPHAMIDE [Suspect]
     Active Substance: CYCLOPHOSPHAMIDE
     Indication: Ewing^s sarcoma
     Dosage: UNK
  8. ETOPOSIDE [Suspect]
     Active Substance: ETOPOSIDE
     Indication: Ewing^s sarcoma
     Dosage: UNK
  9. IRINOTECAN [Suspect]
     Active Substance: IRINOTECAN
     Indication: Ewing^s sarcoma
  10. TEMOZOLOMIDE [Suspect]
     Active Substance: TEMOZOLOMIDE
     Indication: Ewing^s sarcoma

REACTIONS (5)
  - Metastases to lung [Unknown]
  - Ewing^s sarcoma recurrent [Unknown]
  - Kidney fibrosis [Recovering/Resolving]
  - Renal tubular injury [Recovering/Resolving]
  - Tubulointerstitial nephritis [Recovering/Resolving]
